FAERS Safety Report 20777736 (Version 1)
Quarter: 2022Q2

REPORT INFORMATION
  Report Type: Spontaneous
  Country: US (occurrence: None)
  Receive Date: 20220502
  Receipt Date: 20220502
  Transmission Date: 20220721
  Serious: No
  Sender: FDA-Public Use
  Company Number: None

PATIENT
  Age: 28 Year
  Sex: Male

DRUGS (1)
  1. DIMETHYL FUMARATE [Suspect]
     Active Substance: DIMETHYL FUMARATE
     Indication: Product used for unknown indication
     Dosage: OTHER QUANTITY : 240;?FREQUENCY : TWICE A DAY;?
     Route: 048

REACTIONS (3)
  - Flushing [None]
  - Product dose omission issue [None]
  - Multiple sclerosis relapse [None]

NARRATIVE: CASE EVENT DATE: 20220502
